FAERS Safety Report 5489341-7 (Version None)
Quarter: 2007Q4

REPORT INFORMATION
  Report Type: 
  Country: None (occurrence: None)
  Receive Date: 20071005
  Receipt Date: 20070615
  Transmission Date: 20080405
  Serious: No
  Sender: FDA-Public Use
  Company Number: PHEH2007US08394

PATIENT
  Age: 66 Year
  Sex: Male

DRUGS (2)
  1. TEKTURNA [Suspect]
     Indication: HYPERTENSION
     Dosage: 150 MG, QD, ORAL;  300 MG, QD
     Route: 048
     Dates: start: 20070605, end: 20070611
  2. TEKTURNA [Suspect]
     Indication: HYPERTENSION
     Dosage: 150 MG, QD, ORAL;  300 MG, QD
     Route: 048
     Dates: start: 20070612

REACTIONS (2)
  - HEART RATE INCREASED [None]
  - RASH [None]
